FAERS Safety Report 9953999 (Version 2)
Quarter: 2014Q1

REPORT INFORMATION
  Report Type: Report from Study
  Country: US (occurrence: US)
  Receive Date: 20140304
  Receipt Date: 20140304
  Transmission Date: 20141002
  Serious: Yes (Hospitalization, Other)
  Sender: FDA-Public Use
  Company Number: US-ABBVIE-11P-163-0883158-00

PATIENT
  Sex: Female
  Weight: 81.72 kg

DRUGS (30)
  1. HUMIRA 40 MG/0.8 ML PEN [Suspect]
     Indication: RHEUMATOID ARTHRITIS
  2. ENBREL [Suspect]
     Indication: PRODUCT USED FOR UNKNOWN INDICATION
  3. METOPROLOL [Concomitant]
     Indication: HEART RATE
  4. METOPROLOL [Concomitant]
     Indication: BLOOD PRESSURE
  5. TRIAMTERENE [Concomitant]
     Indication: OEDEMA
     Dosage: 37.5/25MG DAILY
  6. TRIAMTERENE [Concomitant]
     Indication: BLOOD PRESSURE
  7. KLOR CON [Concomitant]
     Indication: NEPHROLITHIASIS
     Dosage: 3 DAILY
  8. POTASSIUM CITRATE [Concomitant]
     Indication: NEPHROLITHIASIS
  9. UNKNOWN MEDICATION [Concomitant]
     Indication: OEDEMA
  10. ALLOPURINOL [Concomitant]
     Indication: PRODUCT USED FOR UNKNOWN INDICATION
  11. EVOXAC [Concomitant]
     Indication: SJOGREN^S SYNDROME
  12. GLIMIPRIDE [Concomitant]
     Indication: PRODUCT USED FOR UNKNOWN INDICATION
  13. FOLIC ACID [Concomitant]
     Indication: PRODUCT USED FOR UNKNOWN INDICATION
     Dosage: 2MG DAILY FOR 6 DAYS (NOT TAKEN THE DAY SHE TOOK METHOTREXATE)
  14. METHOTREXATE [Concomitant]
     Indication: PRODUCT USED FOR UNKNOWN INDICATION
  15. FLEXERIL [Concomitant]
     Indication: PRODUCT USED FOR UNKNOWN INDICATION
  16. PREDNISONE [Concomitant]
     Indication: PRODUCT USED FOR UNKNOWN INDICATION
     Dosage: DAILY IN VARIOUS DOSES, CURRENTLY 10MG BUT HAD DONE 5MG FOR YEARS
  17. NEXIUM [Concomitant]
     Indication: GASTROOESOPHAGEAL REFLUX DISEASE
  18. NEXIUM [Concomitant]
     Indication: HIATUS HERNIA
  19. INTEGRA PLUS [Concomitant]
     Indication: ANAEMIA
  20. B12 [Concomitant]
     Indication: PRODUCT USED FOR UNKNOWN INDICATION
     Dosage: DAILY
     Route: 060
  21. CALCIUM [Concomitant]
     Indication: PRODUCT USED FOR UNKNOWN INDICATION
  22. VIT D3 [Concomitant]
     Indication: PRODUCT USED FOR UNKNOWN INDICATION
  23. XYLATAN [Concomitant]
     Indication: GLAUCOMA
     Dosage: DROPS TO EACH EYE DAILY
  24. ASPIRIN [Concomitant]
     Indication: PRODUCT USED FOR UNKNOWN INDICATION
  25. PLAVIX [Concomitant]
     Indication: PRODUCT USED FOR UNKNOWN INDICATION
  26. CRESTOR [Concomitant]
     Indication: PRODUCT USED FOR UNKNOWN INDICATION
  27. OCCUVITE [Concomitant]
     Indication: MACULAR DEGENERATION
     Dosage: DROPS TO EACH EYE DAILY
  28. SINGULAIR [Concomitant]
     Indication: ASTHMA
  29. ZYRTEC [Concomitant]
     Indication: ASTHMA
     Dosage: DAILY
  30. ALBUTEROL [Concomitant]
     Indication: ASTHMA
     Dosage: AT BEDTIME

REACTIONS (35)
  - Pain [Not Recovered/Not Resolved]
  - Rectal cancer [Unknown]
  - Squamous cell carcinoma of the vagina [Unknown]
  - Foot deformity [Not Recovered/Not Resolved]
  - Hand deformity [Not Recovered/Not Resolved]
  - Sciatica [Not Recovered/Not Resolved]
  - Rheumatoid arthritis [Not Recovered/Not Resolved]
  - Arthralgia [Not Recovered/Not Resolved]
  - Joint swelling [Not Recovered/Not Resolved]
  - Arthritis [Not Recovered/Not Resolved]
  - Osteoarthritis [Not Recovered/Not Resolved]
  - Malaise [Not Recovered/Not Resolved]
  - Feeling abnormal [Not Recovered/Not Resolved]
  - Crohn^s disease [Not Recovered/Not Resolved]
  - Gastrointestinal pain [Not Recovered/Not Resolved]
  - Hypophagia [Not Recovered/Not Resolved]
  - Diarrhoea [Not Recovered/Not Resolved]
  - Weight decreased [Not Recovered/Not Resolved]
  - Crohn^s disease [Not Recovered/Not Resolved]
  - Condition aggravated [Not Recovered/Not Resolved]
  - Oedema peripheral [Not Recovered/Not Resolved]
  - Thrombosis [Not Recovered/Not Resolved]
  - White blood cell count decreased [Not Recovered/Not Resolved]
  - Abdominal pain [Not Recovered/Not Resolved]
  - Small intestinal obstruction [Not Recovered/Not Resolved]
  - Renal failure [Not Recovered/Not Resolved]
  - Polyp [Not Recovered/Not Resolved]
  - Precancerous cells present [Not Recovered/Not Resolved]
  - Anaemia [Not Recovered/Not Resolved]
  - Hyperkeratosis [Not Recovered/Not Resolved]
  - Scab [Not Recovered/Not Resolved]
  - Cardiac disorder [Not Recovered/Not Resolved]
  - Nephrolithiasis [Not Recovered/Not Resolved]
  - Iron deficiency [Not Recovered/Not Resolved]
  - Sciatica [Not Recovered/Not Resolved]
